FAERS Safety Report 10643995 (Version 1)
Quarter: 2014Q4

REPORT INFORMATION
  Report Type: Spontaneous
  Country: IT (occurrence: IT)
  Receive Date: 20141210
  Receipt Date: 20141210
  Transmission Date: 20150529
  Serious: Yes (Hospitalization)
  Sender: FDA-Public Use
  Company Number: IT-ABBVIE-14P-083-1317580-00

PATIENT
  Age: 27 Year
  Sex: Female

DRUGS (5)
  1. DEPAKENE [Suspect]
     Active Substance: VALPROIC ACID
     Indication: EPILEPSY
     Dosage: EXTENDED RELEASE
     Route: 048
     Dates: start: 20070101
  2. TEGRETOL [Suspect]
     Active Substance: CARBAMAZEPINE
     Route: 048
  3. DEPAKENE [Suspect]
     Active Substance: VALPROIC ACID
     Route: 048
  4. TEGRETOL [Suspect]
     Active Substance: CARBAMAZEPINE
     Indication: EPILEPSY
     Route: 048
     Dates: start: 20070101
  5. LUCEN (ESOMEPRAZOLE) [Concomitant]
     Active Substance: ESOMEPRAZOLE
     Indication: PRODUCT USED FOR UNKNOWN INDICATION

REACTIONS (5)
  - Oliguria [Recovered/Resolved with Sequelae]
  - Metabolic encephalopathy [Recovered/Resolved with Sequelae]
  - Hyperammonaemia [Recovered/Resolved with Sequelae]
  - Retching [Recovered/Resolved with Sequelae]
  - Hypothyroidism [Recovered/Resolved with Sequelae]

NARRATIVE: CASE EVENT DATE: 20140904
